FAERS Safety Report 5417913-4 (Version None)
Quarter: 2007Q3

REPORT INFORMATION
  Report Type: 
  Country: None (occurrence: None)
  Receive Date: 20070817
  Receipt Date: 20070815
  Transmission Date: 20080115
  Serious: Yes (Other)
  Sender: FDA-Public Use
  Company Number: PHNU2007DE02869

PATIENT
  Age: 75 Year
  Sex: Female

DRUGS (4)
  1. METOPROLOL SUCCINATE [Concomitant]
     Indication: HYPERTENSION
  2. TORSEMIDE [Concomitant]
     Indication: HYPERTENSION
  3. MARCUMAR [Concomitant]
  4. DIOVAN [Suspect]
     Indication: HYPERTENSION
     Dosage: 0.5 DF, QD
     Dates: start: 20070601

REACTIONS (3)
  - BRONCHOPNEUMONIA [None]
  - PRODUCTIVE COUGH [None]
  - PYREXIA [None]
